FAERS Safety Report 9448254 (Version 1)
Quarter: 2013Q3

REPORT INFORMATION
  Report Type: Spontaneous
  Country: DE (occurrence: DE)
  Receive Date: 20130808
  Receipt Date: 20130808
  Transmission Date: 20140515
  Serious: Yes (Hospitalization, Other)
  Sender: FDA-Public Use
  Company Number: DE-PFIZER INC-2013227183

PATIENT
  Age: 1 Day
  Sex: Male

DRUGS (6)
  1. NEURONTIN [Suspect]
     Indication: COMPLEX REGIONAL PAIN SYNDROME
     Dosage: 800 MG, 3X/DAY
     Route: 064
     Dates: start: 20070502
  2. NEURONTIN [Suspect]
     Dosage: 800 MG IN THE MORNING, 400 MG AT NOON, 400 IN THE EVENING
     Route: 064
  3. NEURONTIN [Suspect]
     Dosage: 400 MG, 2X/DAY
     Route: 064
     Dates: end: 20080127
  4. PALLADONE [Suspect]
     Indication: COMPLEX REGIONAL PAIN SYNDROME
     Dosage: 8 MG AND 4 MG DAILY
     Route: 064
     Dates: start: 20070502
  5. PALLADONE [Suspect]
     Dosage: 4MG AND 2.2 MG DAILY
     Route: 064
  6. PALLADONE [Suspect]
     Dosage: 2.6 MG, 2X/DAY
     Route: 064
     Dates: end: 20080127

REACTIONS (3)
  - Maternal exposure during pregnancy [Unknown]
  - Bradycardia neonatal [Unknown]
  - Hyperbilirubinaemia neonatal [Recovered/Resolved]
